FAERS Safety Report 6316026-7 (Version None)
Quarter: 2009Q3

REPORT INFORMATION
  Report Type: 
  Country: None (occurrence: None)
  Receive Date: 20090819
  Receipt Date: 20090819
  Transmission Date: 20100115
  Serious: Yes (Hospitalization)
  Sender: FDA-Public Use
  Company Number: None

PATIENT
  Sex: Male

DRUGS (2)
  1. GEMZAR [Suspect]
     Indication: CHONDROSARCOMA
     Dosage: 675MG/M2 EVERY 3 WKS IV
     Route: 042
     Dates: start: 20090414, end: 20090804
  2. DOCETAXEL [Suspect]
     Dosage: 75 MG/M2 EVERY 3 WKS IV
     Route: 042
     Dates: start: 20090414, end: 20090804

REACTIONS (2)
  - CARDIAC FAILURE CONGESTIVE [None]
  - PULMONARY EMBOLISM [None]
